FAERS Safety Report 9841998 (Version 1)
Quarter: 2014Q1

REPORT INFORMATION
  Report Type: Spontaneous
  Country: US (occurrence: US)
  Receive Date: 20140124
  Receipt Date: 20140124
  Transmission Date: 20141002
  Serious: Yes (Disabling)
  Sender: FDA-Public Use
  Company Number: US-GE HEALTHCARE MEDICAL DIAGNOSTICS-OSCN-PR-0906S-0313

PATIENT
  Age: 51 Year
  Sex: Male

DRUGS (3)
  1. OMNISCAN [Suspect]
     Indication: PRODUCT USED FOR UNKNOWN INDICATION
     Route: 042
     Dates: start: 20030130, end: 20030130
  2. GADOLINIUM (UNSPECIFIED) [Suspect]
     Indication: PRODUCT USED FOR UNKNOWN INDICATION
     Dates: start: 20050823, end: 20050823
  3. MAGNEVIST [Suspect]
     Indication: INTERVERTEBRAL DISC DISORDER
     Dates: start: 20041230, end: 20041230

REACTIONS (1)
  - Nephrogenic systemic fibrosis [Not Recovered/Not Resolved]
